FAERS Safety Report 5669754-0 (Version None)
Quarter: 2008Q1

REPORT INFORMATION
  Report Type: 
  Country: None (occurrence: None)
  Receive Date: 20080317
  Receipt Date: 20080306
  Transmission Date: 20080703
  Serious: Yes (Hospitalization, Other)
  Sender: FDA-Public Use
  Company Number: BR-WYE-H02990208

PATIENT
  Sex: Female
  Weight: 59 kg

DRUGS (5)
  1. EFFEXOR [Suspect]
     Indication: PANIC ATTACK
     Dosage: 1/4 OF A 37.5 MG TABLET
     Route: 048
     Dates: start: 19990101, end: 19990101
  2. EFFEXOR [Suspect]
     Dosage: 1/2 OF A 37.5 MG TABLET
     Route: 048
     Dates: start: 19990101, end: 19990101
  3. EFFEXOR [Suspect]
     Route: 048
     Dates: start: 19990101, end: 20020101
  4. EFFEXOR [Suspect]
     Dosage: DECREASED THE DOSES GRADUALLY
     Route: 048
     Dates: start: 20020101, end: 20020701
  5. RIVOTRIL [Concomitant]
     Indication: DEPRESSION
     Route: 048

REACTIONS (5)
  - BENIGN BREAST NEOPLASM [None]
  - BENIGN GASTROINTESTINAL NEOPLASM [None]
  - GASTROINTESTINAL CARCINOMA [None]
  - HYPERTENSION [None]
  - THYROID DISORDER [None]
